FAERS Safety Report 6437325-4 (Version None)
Quarter: 2009Q4

REPORT INFORMATION
  Report Type: 
  Country: None (occurrence: None)
  Receive Date: 20091112
  Receipt Date: 20091109
  Transmission Date: 20100525
  Serious: Yes (Death)
  Sender: FDA-Public Use
  Company Number: IN-ELI_LILLY_AND_COMPANY-IN200911001837

PATIENT
  Age: 22 Year
  Sex: Female

DRUGS (4)
  1. XIGRIS [Suspect]
     Indication: SEPTIC SHOCK
     Dosage: UNK, OTHER (48 HRS OF THERAPY)
     Route: 042
     Dates: start: 20091106
  2. ANTIBIOTICS [Concomitant]
     Dosage: UNK, UNKNOWN
     Route: 065
     Dates: start: 20091105
  3. NORADRENALINE [Concomitant]
     Dosage: UNK, UNKNOWN
     Route: 065
     Dates: start: 20091105
  4. DOPAMINE HCL [Concomitant]
     Dosage: UNK, UNKNOWN
     Route: 065

REACTIONS (1)
  - HYPOTENSION [None]
